APPROVED DRUG PRODUCT: ARMODAFINIL
Active Ingredient: ARMODAFINIL
Strength: 150MG
Dosage Form/Route: TABLET;ORAL
Application: A206069 | Product #002 | TE Code: AB
Applicant: AUROBINDO PHARMA LTD
Approved: Mar 6, 2018 | RLD: No | RS: No | Type: RX